FAERS Safety Report 4651457-2 (Version None)
Quarter: 2005Q2

REPORT INFORMATION
  Report Type: 
  Country: None (occurrence: None)
  Receive Date: 20050404
  Receipt Date: 20050120
  Transmission Date: 20051028
  Serious: Yes (Hospitalization)
  Sender: FDA-Public Use
  Company Number: USA050187951

PATIENT
  Sex: Female

DRUGS (4)
  1. CYMBALTA [Suspect]
     Dates: start: 20050101
  2. LANTUS [Concomitant]
  3. PRANDIN [Concomitant]
  4. ACTOS [Concomitant]

REACTIONS (2)
  - BLOOD GLUCOSE DECREASED [None]
  - DRUG INTERACTION [None]
